FAERS Safety Report 10349530 (Version 2)
Quarter: 2014Q3

REPORT INFORMATION
  Report Type: Spontaneous
  Country: IN (occurrence: IN)
  Receive Date: 20140730
  Receipt Date: 20140730
  Transmission Date: 20150326
  Serious: Yes (Other)
  Sender: FDA-Public Use
  Company Number: IN-RANBAXY-2013R1-76141

PATIENT
  Age: 14 Year
  Sex: Female

DRUGS (8)
  1. ATROPINE [Suspect]
     Active Substance: ATROPINE
     Indication: PRODUCT USED FOR UNKNOWN INDICATION
     Dosage: 5 MG, Q1H
     Route: 042
  2. PROPOFOL. [Suspect]
     Active Substance: PROPOFOL
     Indication: SEDATION
     Route: 042
  3. DEXMEDETOMIDINE [Concomitant]
     Active Substance: DEXMEDETOMIDINE
     Indication: SEDATION
     Dosage: UNK
     Route: 065
  4. MIDAZOLAM [Concomitant]
     Active Substance: MIDAZOLAM\MIDAZOLAM HYDROCHLORIDE
     Indication: SEDATION
     Dosage: 2 MG, Q1H
     Route: 042
  5. MORPHINE [Suspect]
     Active Substance: MORPHINE
     Indication: SEDATION
     Dosage: 2 MG, Q1H
     Route: 042
  6. HALOPERIDOL. [Suspect]
     Active Substance: HALOPERIDOL
     Indication: SEDATION
     Dosage: 2-10 MG, PRN
     Route: 042
  7. DIAZEPAM. [Concomitant]
     Active Substance: DIAZEPAM
     Indication: SEDATION
     Dosage: 10 MG, BID
     Route: 042
  8. PROMETHAZINE [Suspect]
     Active Substance: PROMETHAZINE\PROMETHAZINE HYDROCHLORIDE
     Indication: SEDATION
     Dosage: 25 MG TID
     Route: 042

REACTIONS (2)
  - Neuroleptic malignant syndrome [Unknown]
  - Psychotic disorder [Recovered/Resolved]
